FAERS Safety Report 13378302 (Version 2)
Quarter: 2017Q2

REPORT INFORMATION
  Report Type: Spontaneous
  Country: PT (occurrence: PT)
  Receive Date: 20170328
  Receipt Date: 20170507
  Transmission Date: 20170830
  Serious: Yes (Other)
  Sender: FDA-Public Use
  Company Number: PT-MYLANLABS-2017M1018897

PATIENT

DRUGS (1)
  1. BRUFEN [Suspect]
     Active Substance: IBUPROFEN
     Dosage: UNK
     Route: 048
     Dates: start: 201512

REACTIONS (3)
  - Epistaxis [Recovered/Resolved]
  - Rash generalised [Recovered/Resolved]
  - Enanthema [Recovered/Resolved]

NARRATIVE: CASE EVENT DATE: 201512
